FAERS Safety Report 8769664 (Version 1)
Quarter: 2012Q4

REPORT INFORMATION
  Report Type: 
  Country: FR (occurrence: FR)
  Receive Date: 20120905
  Receipt Date: 20120905
  Transmission Date: 20130627
  Serious: Yes (Hospitalization, Other)
  Sender: FDA-Public Use
  Company Number: FR-MERCK-1208FRA011351

PATIENT

DRUGS (6)
  1. FORTZAAR 100 MG/25 MG, COMPRIM? PELLICUL? [Suspect]
     Indication: HYPERTENSION
     Dosage: 1 DF, qd
     Route: 048
     Dates: end: 20120802
  2. PENTACARINAT [Suspect]
     Indication: ANTIFUNGAL PROPHYLAXIS
     Dosage: 1 DF, qd
     Route: 055
     Dates: start: 201204, end: 201207
  3. VALACYCLOVIR HYDROCHLORIDE [Suspect]
     Dosage: UNK
     Route: 048
     Dates: start: 201205, end: 20120802
  4. OXOMEMAZINE [Suspect]
     Route: 048
  5. VASTEN [Suspect]
     Indication: DYSLIPIDAEMIA
     Dosage: 20 mg, qd
     Route: 048
     Dates: end: 20120802
  6. GLUCOPHAGE [Concomitant]
     Indication: TYPE 2 DIABETES MELLITUS
     Dosage: 850 mg, qd
     Dates: end: 20120802

REACTIONS (1)
  - Pancytopenia [Recovering/Resolving]
